FAERS Safety Report 5580283-5 (Version None)
Quarter: 2008Q1

REPORT INFORMATION
  Report Type: 
  Country: None (occurrence: None)
  Receive Date: 20080103
  Receipt Date: 20071231
  Transmission Date: 20080703
  Serious: Yes (Hospitalization)
  Sender: FDA-Public Use
  Company Number: B0501288A

PATIENT
  Age: 53 Year
  Sex: Female

DRUGS (6)
  1. ONDANSETRON [Suspect]
     Indication: PROPHYLAXIS OF NAUSEA AND VOMITING
     Route: 042
     Dates: start: 20071204
  2. DEXAMETHASONE TAB [Concomitant]
     Indication: PROPHYLAXIS
     Route: 042
     Dates: start: 20071204, end: 20071204
  3. TRAMADOL HCL [Concomitant]
     Indication: PAIN
     Route: 042
     Dates: start: 20070904, end: 20071204
  4. CEFUROXIME SODIUM [Concomitant]
     Indication: PROPHYLAXIS
     Route: 042
     Dates: start: 20071204, end: 20071204
  5. METRONIDAZOLE [Concomitant]
     Indication: PROPHYLAXIS
     Route: 042
     Dates: start: 20071204, end: 20071204
  6. MORPHINE [Concomitant]
     Indication: PROPHYLAXIS
     Route: 042
     Dates: start: 20071204, end: 20071204

REACTIONS (2)
  - DYSTONIA [None]
  - TREMOR [None]
